FAERS Safety Report 4618366-6 (Version None)
Quarter: 2005Q1

REPORT INFORMATION
  Report Type: 
  Country: None (occurrence: None)
  Receive Date: 20050324
  Receipt Date: 20050309
  Transmission Date: 20050727
  Serious: Yes (Hospitalization)
  Sender: FDA-Public Use
  Company Number: GBS050316876

PATIENT
  Age: 22 Year
  Sex: Female

DRUGS (5)
  1. FLUOXETINE [Suspect]
     Dosage: 200 MG
  2. DEPAKOTE [Concomitant]
  3. PARACETAMOL [Concomitant]
  4. ABILIFY [Concomitant]
  5. CANNABIS [Concomitant]

REACTIONS (4)
  - DEPRESSION [None]
  - INTENTIONAL MISUSE [None]
  - INTERNATIONAL NORMALISED RATIO INCREASED [None]
  - SUICIDE ATTEMPT [None]
